FAERS Safety Report 4646300-1 (Version None)
Quarter: 2005Q2

REPORT INFORMATION
  Report Type: 
  Country: None (occurrence: None)
  Receive Date: 20050427
  Receipt Date: 20050202
  Transmission Date: 20051028
  Serious: Yes (Other)
  Sender: FDA-Public Use
  Company Number: CA-MERCK-0502CAN00055

PATIENT
  Age: 46 Year
  Sex: Male

DRUGS (8)
  1. VIOXX [Suspect]
     Route: 048
     Dates: start: 20021016, end: 20040901
  2. LORAZEPAM [Concomitant]
     Route: 065
     Dates: start: 20020923
  3. OLANZAPINE [Concomitant]
     Route: 065
     Dates: start: 20020923
  4. CLARITHROMYCIN [Concomitant]
     Route: 065
     Dates: start: 20031025, end: 20031103
  5. HOMATROPINE METHYLBROMIDE AND HYDROCODONE BITARTRATE [Concomitant]
     Route: 065
     Dates: start: 20031029
  6. ACETAMINOPHEN AND CODEINE PHOSPHATE [Concomitant]
     Route: 065
     Dates: start: 20020930
  7. ACETAMINOPHEN AND OXYCODONE HYDROCHLORIDE [Concomitant]
     Route: 065
     Dates: start: 20021029
  8. ALBUTEROL [Concomitant]
     Route: 055
     Dates: start: 20031028

REACTIONS (1)
  - MYOCARDIAL INFARCTION [None]
